FAERS Safety Report 23342760 (Version 2)
Quarter: 2024Q1

REPORT INFORMATION
  Report Type: Spontaneous
  Country: US (occurrence: US)
  Receive Date: 20231227
  Receipt Date: 20240105
  Transmission Date: 20240410
  Serious: No
  Sender: FDA-Public Use
  Company Number: US-BIOVITRUM-2023-US-020895

PATIENT
  Age: 10 Month
  Sex: Male

DRUGS (3)
  1. SYNAGIS [Suspect]
     Active Substance: PALIVIZUMAB
     Indication: Antiviral prophylaxis
     Dosage: 15MG/KG MONTHLY
     Route: 030
     Dates: start: 20231108
  2. SYNAGIS [Suspect]
     Active Substance: PALIVIZUMAB
     Indication: Premature baby
     Dosage: 15MG/KG MONTHLY?100MG/ML
     Route: 030
     Dates: start: 202311
  3. SYNAGIS [Suspect]
     Active Substance: PALIVIZUMAB
     Indication: Chronic respiratory disease
     Dosage: 15MG/KG MONTHLY?50MG/0.5ML
     Route: 030
     Dates: start: 202311

REACTIONS (2)
  - Respiratory syncytial virus infection [Unknown]
  - Inappropriate schedule of product administration [Unknown]
